FAERS Safety Report 6744157-6 (Version None)
Quarter: 2010Q2

REPORT INFORMATION
  Report Type: 
  Country: None (occurrence: None)
  Receive Date: 20100527
  Receipt Date: 20100519
  Transmission Date: 20101027
  Serious: Yes (Other)
  Sender: FDA-Public Use
  Company Number: FR-ASTRAZENECA-2010SE15648

PATIENT
  Age: 25457 Day
  Sex: Female

DRUGS (6)
  1. CRESTOR [Suspect]
     Indication: DYSLIPIDAEMIA
     Route: 048
     Dates: start: 20100309, end: 20100326
  2. OMEPRAZOLE [Concomitant]
     Indication: RHEUMATOID ARTHRITIS
  3. NEBICOX [Concomitant]
     Indication: HYPERTENSION
  4. ZYLORIC [Concomitant]
     Indication: GOUT
  5. CORTANCYL [Concomitant]
     Indication: RHEUMATOID ARTHRITIS
  6. LAMALINE [Concomitant]
     Indication: RHEUMATOID ARTHRITIS

REACTIONS (1)
  - HEPATITIS [None]
